FAERS Safety Report 8510501-2 (Version None)
Quarter: 2012Q3

REPORT INFORMATION
  Report Type: 
  Country: None (occurrence: None)
  Receive Date: 20120716
  Receipt Date: 20120710
  Transmission Date: 20120928
  Serious: Yes (Death)
  Sender: FDA-Public Use
  Company Number: US-BRISTOL-MYERS SQUIBB COMPANY-16756702

PATIENT
  Age: 71 Year
  Sex: Female

DRUGS (5)
  1. ABILIFY [Suspect]
     Dosage: THERAPY DURATION:ALMOST A YEAR
  2. COREG [Concomitant]
  3. ZOCOR [Concomitant]
  4. PAXIL [Concomitant]
  5. LASIX [Concomitant]

REACTIONS (1)
  - THROAT CANCER [None]
